FAERS Safety Report 8165298-5 (Version None)
Quarter: 2012Q1

REPORT INFORMATION
  Report Type: 
  Country: None (occurrence: None)
  Receive Date: 20120222
  Receipt Date: 20120222
  Transmission Date: 20120608
  Serious: Yes (Hospitalization)
  Sender: FDA-Public Use
  Company Number: None

PATIENT
  Sex: Female
  Weight: 74.9 kg

DRUGS (13)
  1. TAXOTERE [Suspect]
  2. MIRALAX [Concomitant]
  3. CLONIDINE HCL [Concomitant]
  4. FLUTICASONE PROPIONATE [Concomitant]
  5. COMPAZINE [Concomitant]
  6. LISINOPRIL [Concomitant]
  7. ALIMTA [Suspect]
     Indication: SARCOMA
     Dosage: 920MG IV C1D1
     Route: 042
     Dates: start: 20120207
  8. ALIMTA [Suspect]
     Indication: SARCOMA
     Dosage: 920MG IV C1D1
     Route: 042
     Dates: start: 20120124
  9. OXYCONTIN [Concomitant]
  10. OXYCODONE HCL [Concomitant]
  11. TAXOTERE [Suspect]
     Indication: SARCOMA
     Dosage: 74MG IV C1D1
     Route: 042
     Dates: start: 20120124
  12. TAXOTERE [Suspect]
     Indication: SARCOMA
     Dosage: 74MG IV C1D1
     Route: 042
     Dates: start: 20120207
  13. CLARITIN [Concomitant]

REACTIONS (2)
  - SINUS TACHYCARDIA [None]
  - DEVICE MALFUNCTION [None]
